FAERS Safety Report 20620527 (Version 1)
Quarter: 2022Q1

REPORT INFORMATION
  Report Type: Spontaneous
  Country: US (occurrence: US)
  Receive Date: 20220322
  Receipt Date: 20220322
  Transmission Date: 20220423
  Serious: Yes (Life-Threatening, Hospitalization, Other)
  Sender: FDA-Public Use
  Company Number: US-BAYER-2022A039552

PATIENT
  Age: 53 Year
  Sex: Male

DRUGS (3)
  1. RIVAROXABAN [Suspect]
     Active Substance: RIVAROXABAN
  2. ASPIRIN [Interacting]
     Active Substance: ASPIRIN
  3. CLOPIDOGREL [Interacting]
     Active Substance: CLOPIDOGREL BISULFATE

REACTIONS (4)
  - Haemoptysis [None]
  - Acute respiratory failure [None]
  - Pulmonary alveolar haemorrhage [None]
  - Labelled drug-drug interaction medication error [None]
